FAERS Safety Report 14065944 (Version 1)
Quarter: 2017Q4

REPORT INFORMATION
  Report Type: Spontaneous
  Country: US (occurrence: None)
  Receive Date: 20171006
  Receipt Date: 20171006
  Transmission Date: 20180321
  Serious: Yes (Hospitalization)
  Sender: FDA-Public Use
  Company Number: None

PATIENT
  Age: 36 Year
  Sex: Male

DRUGS (1)
  1. AMPYRA [Suspect]
     Active Substance: DALFAMPRIDINE
     Indication: MULTIPLE SCLEROSIS
     Route: 048
     Dates: start: 201407

REACTIONS (9)
  - Haemoglobin decreased [None]
  - Serum ferritin increased [None]
  - Neutrophil count decreased [None]
  - Haematocrit decreased [None]
  - T-lymphocyte count increased [None]
  - CD8 lymphocyte percentage increased [None]
  - Red blood cell count decreased [None]
  - Neutropenia [None]
  - Blood potassium decreased [None]

NARRATIVE: CASE EVENT DATE: 20170911
